FAERS Safety Report 13333654 (Version 2)
Quarter: 2017Q1

REPORT INFORMATION
  Report Type: Spontaneous
  Country: US (occurrence: US)
  Receive Date: 20170314
  Receipt Date: 20170314
  Transmission Date: 20170428
  Serious: Yes (Other)
  Sender: FDA-Public Use
  Company Number: ALCN2017US001880

PATIENT
  Sex: Male

DRUGS (1)
  1. PAZEO [Suspect]
     Active Substance: OLOPATADINE HYDROCHLORIDE
     Indication: PRODUCT USED FOR UNKNOWN INDICATION
     Dosage: 1 GTT, BID
     Route: 047

REACTIONS (9)
  - Ocular hyperaemia [Unknown]
  - Eye pruritus [Unknown]
  - Erythema [Unknown]
  - Drug ineffective [Unknown]
  - Blindness [Unknown]
  - Visual acuity reduced [Unknown]
  - Eye pain [Unknown]
  - Eye irritation [Unknown]
  - Vision blurred [Unknown]
